FAERS Safety Report 5017043-X (Version None)
Quarter: 2006Q2

REPORT INFORMATION
  Report Type: 
  Country: None (occurrence: None)
  Receive Date: 20060514
  Receipt Date: 20060217
  Transmission Date: 20061013
  Serious: Yes (Other)
  Sender: FDA-Public Use
  Company Number: 2006026614

PATIENT
  Age: 79 Year
  Sex: Female
  Weight: 49.8957 kg

DRUGS (10)
  1. MACUGEN [Suspect]
     Indication: MACULAR DEGENERATION
     Dosage: 0.3MG PER INJECTION (0.3 MG, 1 IN 6 WEEK), ITRAVITREOUS
     Dates: start: 20050101
  2. PRINIVIL [Concomitant]
  3. TOPROL-XL [Concomitant]
  4. PLAVIX [Concomitant]
  5. ASPIRIN [Concomitant]
  6. VITAMINS (VITAMINS) [Concomitant]
  7. FOLIC ACID [Concomitant]
  8. LORAZEPAM [Concomitant]
  9. NORTRIPTYLINE HCL [Concomitant]
  10. LUNESTA [Concomitant]

REACTIONS (2)
  - EYE PAIN [None]
  - INTRAOCULAR PRESSURE INCREASED [None]
